FAERS Safety Report 4602184-9 (Version None)
Quarter: 2005Q2

REPORT INFORMATION
  Report Type: 
  Country: None (occurrence: None)
  Receive Date: 20050215
  Receipt Date: 20040928
  Transmission Date: 20051028
  Serious: Yes (Other)
  Sender: FDA-Public Use
  Company Number: MC200400628

PATIENT
  Sex: Female

DRUGS (1)
  1. ANGIOMAX [Suspect]

REACTIONS (1)
  - HAEMORRHAGE INTRACRANIAL [None]
